FAERS Safety Report 20455834 (Version 1)
Quarter: 2022Q1

REPORT INFORMATION
  Report Type: Spontaneous
  Country: US (occurrence: None)
  Receive Date: 20220210
  Receipt Date: 20220210
  Transmission Date: 20220424
  Serious: No
  Sender: FDA-Public Use
  Company Number: None

PATIENT
  Age: 77 Year
  Sex: Male
  Weight: 218 kg

DRUGS (1)
  1. ZOLPIDEM [Suspect]
     Active Substance: ZOLPIDEM TARTRATE
     Indication: Sleep disorder
     Dosage: 5 TAB AT BEDTIME PO?
     Route: 048
     Dates: start: 20211006, end: 20211028

REACTIONS (1)
  - Nightmare [None]

NARRATIVE: CASE EVENT DATE: 20211110
